FAERS Safety Report 20140786 (Version 1)
Quarter: 2021Q4

REPORT INFORMATION
  Report Type: Spontaneous
  Country: CA (occurrence: CA)
  Receive Date: 20211202
  Receipt Date: 20211202
  Transmission Date: 20220303
  Serious: Yes (Other)
  Sender: FDA-Public Use
  Company Number: CA-NOVARTISPH-NVSC2020CA276529

PATIENT
  Age: 92 Year
  Sex: Female

DRUGS (1)
  1. TIMOLOL MALEATE\TRAVOPROST [Suspect]
     Active Substance: TIMOLOL MALEATE\TRAVOPROST
     Indication: Product used for unknown indication
     Dosage: UNK (DROP)
     Route: 065

REACTIONS (3)
  - Deafness [Unknown]
  - Blindness [Unknown]
  - Hallucination [Unknown]

NARRATIVE: CASE EVENT DATE: 20200101
